FAERS Safety Report 24575226 (Version 3)
Quarter: 2024Q4

REPORT INFORMATION
  Report Type: Report from Study
  Country: US (occurrence: US)
  Receive Date: 20241104
  Receipt Date: 20241112
  Transmission Date: 20250114
  Serious: Yes (Hospitalization)
  Sender: JOHNSON AND JOHNSON
  Company Number: US-JNJFOC-20240941198

PATIENT
  Age: 47 Year
  Sex: Female
  Weight: 144.5 kg

DRUGS (3)
  1. SELEXIPAG [Suspect]
     Active Substance: SELEXIPAG
     Indication: Pulmonary hypertension
     Route: 048
  2. SELEXIPAG [Suspect]
     Active Substance: SELEXIPAG
     Route: 048
  3. SELEXIPAG [Suspect]
     Active Substance: SELEXIPAG
     Dosage: EXPIRY DATE :28-FEB-2027
     Route: 048

REACTIONS (21)
  - Pulmonary oedema [Unknown]
  - Arthritis infective [Unknown]
  - Discomfort [Unknown]
  - Bacterial test positive [Unknown]
  - Facial pain [Recovered/Resolved]
  - Chest pain [Recovered/Resolved]
  - Rib fracture [Unknown]
  - Productive cough [Unknown]
  - Headache [Unknown]
  - Urinary tract infection [Not Recovered/Not Resolved]
  - Migraine [Unknown]
  - Osteoporosis [Unknown]
  - Wound [Not Recovered/Not Resolved]
  - Pain in jaw [Unknown]
  - Tooth infection [Unknown]
  - Infection [Unknown]
  - Tendonitis [Unknown]
  - Swelling face [Unknown]
  - Infection [Unknown]
  - Gait disturbance [Unknown]
  - Dizziness [Unknown]

NARRATIVE: CASE EVENT DATE: 20241020
